FAERS Safety Report 5951938-5 (Version None)
Quarter: 2008Q4

REPORT INFORMATION
  Report Type: 
  Country: None (occurrence: None)
  Receive Date: 20081113
  Receipt Date: 20080117
  Transmission Date: 20090506
  Serious: No
  Sender: FDA-Public Use
  Company Number: A0676127A

PATIENT
  Age: 83 Year
  Sex: Female

DRUGS (6)
  1. COREG [Suspect]
     Dosage: 6.25MG TWICE PER DAY
     Route: 048
     Dates: start: 20061101
  2. COREG CR [Suspect]
     Indication: DRUG USE FOR UNKNOWN INDICATION
  3. PREMARIN [Concomitant]
  4. TRAMADOL HCL [Concomitant]
  5. PLAVIX [Concomitant]
  6. PRIMIDONE [Concomitant]

REACTIONS (7)
  - CHEST DISCOMFORT [None]
  - CHEST PAIN [None]
  - FOOD POISONING [None]
  - HEART RATE INCREASED [None]
  - PAIN [None]
  - PALPITATIONS [None]
  - ROAD TRAFFIC ACCIDENT [None]
